FAERS Safety Report 5319350-X (Version None)
Quarter: 2007Q1

REPORT INFORMATION
  Report Type: 
  Country: None (occurrence: None)
  Receive Date: 20070201
  Receipt Date: 20060309
  Transmission Date: 20070707
  Serious: Yes (Hospitalization)
  Sender: FDA-Public Use
  Company Number: US-2005-021350

PATIENT
  Age: 25 Year
  Sex: Female

DRUGS (1)
  1. MIRENA [Suspect]
     Indication: CONTRACEPTION
     Dosage: 20 UG DAY CONT INTRA-UTERINE
     Route: 067
     Dates: start: 20040701

REACTIONS (3)
  - AMENORRHOEA [None]
  - DYSPAREUNIA [None]
  - OVARIAN CYST [None]
